FAERS Safety Report 6067828-6 (Version None)
Quarter: 2009Q1

REPORT INFORMATION
  Report Type: 
  Country: None (occurrence: None)
  Receive Date: 20090202
  Receipt Date: 20090122
  Transmission Date: 20090719
  Serious: Yes (Other)
  Sender: FDA-Public Use
  Company Number: TRP_05921_2008

PATIENT
  Sex: Female

DRUGS (3)
  1. RIBASPHERE [Suspect]
     Indication: HEPATITIS C
     Dosage: 800 MG
     Dates: start: 20080319
  2. PEGASYS [Suspect]
     Indication: HEPATITIS C
     Dosage: 180 MCG
     Dates: start: 20080319
  3. ZOLOFT [Concomitant]

REACTIONS (11)
  - COUGH [None]
  - DRY SKIN [None]
  - FATIGUE [None]
  - HAEMANGIOMA OF LIVER [None]
  - LABORATORY TEST ABNORMAL [None]
  - MUSCULOSKELETAL CHEST PAIN [None]
  - ORAL CANDIDIASIS [None]
  - PAIN [None]
  - PLATELET COUNT DECREASED [None]
  - PRURITUS [None]
  - WEIGHT DECREASED [None]
